FAERS Safety Report 4897854-1 (Version None)
Quarter: 2006Q1

REPORT INFORMATION
  Report Type: 
  Country: None (occurrence: None)
  Receive Date: 20060201
  Receipt Date: 20051124
  Transmission Date: 20060701
  Serious: Yes (Other)
  Sender: FDA-Public Use
  Company Number: BE-GLAXOSMITHKLINE-B0401756A

PATIENT
  Age: 53 Year
  Sex: Female

DRUGS (4)
  1. SEROXAT [Suspect]
     Indication: AFFECTIVE DISORDER
     Dosage: 10MG PER DAY
     Route: 048
     Dates: start: 20050401, end: 20051002
  2. ALPRAZOLAM [Concomitant]
  3. INDERAL [Concomitant]
     Dosage: 10MG THREE TIMES PER DAY
     Route: 048
     Dates: start: 20050501
  4. DIOVANE [Concomitant]
     Route: 048

REACTIONS (5)
  - BALANCE DISORDER [None]
  - DRUG WITHDRAWAL SYNDROME [None]
  - ELECTROENCEPHALOGRAM ABNORMAL [None]
  - MALAISE [None]
  - PETIT MAL EPILEPSY [None]
